FAERS Safety Report 7496192-0 (Version None)
Quarter: 2011Q2

REPORT INFORMATION
  Report Type: 
  Country: None (occurrence: None)
  Receive Date: 20110523
  Receipt Date: 20110510
  Transmission Date: 20111010
  Serious: Yes (Hospitalization, Other)
  Sender: FDA-Public Use
  Company Number: PHHY2011ES38958

PATIENT
  Age: 72 Year
  Sex: Female

DRUGS (3)
  1. HESPERCORBIN [Interacting]
     Indication: OSTEOARTHRITIS
     Dosage: 800 MG, QD
     Route: 048
     Dates: start: 20080701
  2. VOLTAREN [Suspect]
     Indication: OSTEOARTHRITIS
     Dosage: 150 MG, QD
     Dates: end: 20100802
  3. SERACTIL [Interacting]
     Indication: OSTEOARTHRITIS
     Dosage: 1.2 G, QD
     Route: 048
     Dates: start: 20100723, end: 20100729

REACTIONS (14)
  - GASTROINTESTINAL HAEMORRHAGE [None]
  - HYPERTENSION [None]
  - GASTRIC ULCER [None]
  - ASTHENIA [None]
  - ABDOMINAL PAIN [None]
  - HELICOBACTER TEST POSITIVE [None]
  - VARICES OESOPHAGEAL [None]
  - PHLEBITIS [None]
  - INFLAMMATION [None]
  - HAEMOGLOBIN DECREASED [None]
  - HAEMATOCRIT DECREASED [None]
  - DRUG INTERACTION [None]
  - GASTRITIS [None]
  - MELAENA [None]
